FAERS Safety Report 6150457-3 (Version None)
Quarter: 2009Q2

REPORT INFORMATION
  Report Type: 
  Country: None (occurrence: None)
  Receive Date: 20090409
  Receipt Date: 20090407
  Transmission Date: 20091009
  Serious: Yes (Death, Hospitalization)
  Sender: FDA-Public Use
  Company Number: PHEH2008US11211

PATIENT
  Sex: Female

DRUGS (1)
  1. TEKTURNA [Suspect]
     Indication: HYPERTENSION

REACTIONS (4)
  - ATRIOVENTRICULAR BLOCK COMPLETE [None]
  - CARDIAC ARREST [None]
  - CARDIAC FAILURE [None]
  - TREATMENT NONCOMPLIANCE [None]
